FAERS Safety Report 5732788-1 (Version None)
Quarter: 2008Q2

REPORT INFORMATION
  Report Type: 
  Country: None (occurrence: None)
  Receive Date: 20080507
  Receipt Date: 20080507
  Transmission Date: 20081010
  Serious: Yes (Hospitalization)
  Sender: FDA-Public Use
  Company Number: None

PATIENT
  Age: 58 Year
  Sex: Male

DRUGS (3)
  1. WARFARIN SODIUM [Suspect]
     Indication: HEART VALVE REPLACEMENT
     Dosage: 7MG/7.5MG EVERY OTHER DAY PO
     Route: 048
  2. ASPIRIN [Suspect]
  3. ETODOLAC [Suspect]

REACTIONS (5)
  - HAEMOGLOBIN DECREASED [None]
  - HEADACHE [None]
  - HYPOTENSION [None]
  - INTERNATIONAL NORMALISED RATIO INCREASED [None]
  - MELAENA [None]
